FAERS Safety Report 17251637 (Version 1)
Quarter: 2019Q4

REPORT INFORMATION
  Report Type: Spontaneous
  Country: US (occurrence: US)
  Receive Date: 20191216
  Receipt Date: 20191216
  Transmission Date: 20200122
  Serious: No
  Sender: FDA-Public Use
  Company Number: None

PATIENT
  Age: 61 Year
  Sex: Female
  Weight: 74.84 kg

DRUGS (3)
  1. SYNTHROID [Concomitant]
     Active Substance: LEVOTHYROXINE SODIUM
  2. MELOXICAM 15MG [Suspect]
     Active Substance: MELOXICAM
     Indication: MENISCUS INJURY
     Dosage: ?          QUANTITY:1 UNK - UNKNOWN;?
     Route: 048
     Dates: start: 20191201, end: 20191202
  3. VITAMIN D3 [Concomitant]
     Active Substance: CHOLECALCIFEROL

REACTIONS (2)
  - Somnolence [None]
  - Product label issue [None]
